FAERS Safety Report 7518122-5 (Version None)
Quarter: 2011Q2

REPORT INFORMATION
  Report Type: 
  Country: None (occurrence: None)
  Receive Date: 20110523
  Receipt Date: 20110505
  Transmission Date: 20111010
  Serious: Yes (Hospitalization, Other)
  Sender: FDA-Public Use
  Company Number: 2011MA005439

PATIENT
  Age: 40 Year
  Sex: Male

DRUGS (9)
  1. VERAPAMIL HYDROCHLORIDE [Suspect]
     Indication: SUICIDE ATTEMPT
     Dosage: 21.6 G, 1X, PO
     Route: 048
  2. DEPAKOTE [Concomitant]
  3. SERTRALINE HYDROCHLORIDE [Concomitant]
  4. CHLORDIAZEPOXIDE [Concomitant]
  5. KLONOPIN [Concomitant]
  6. ACETAMINOPHEN [Concomitant]
  7. METOPROLOL SUCCINATE [Concomitant]
  8. PAROXETINE HCL [Concomitant]
  9. ZOLPIDEM [Concomitant]

REACTIONS (12)
  - INTENTIONAL OVERDOSE [None]
  - NAUSEA [None]
  - LETHARGY [None]
  - SUICIDE ATTEMPT [None]
  - TACHYCARDIA [None]
  - ATRIOVENTRICULAR BLOCK COMPLETE [None]
  - VOMITING [None]
  - PNEUMONIA ASPIRATION [None]
  - HYPOTENSION [None]
  - CHEST PAIN [None]
  - PULMONARY OEDEMA [None]
  - DRUG SCREEN POSITIVE [None]
